FAERS Safety Report 8280672 (Version 2)
Quarter: 2013Q4

REPORT INFORMATION
  Report Type: Spontaneous
  Country: US (occurrence: US)
  Receive Date: 20111208
  Receipt Date: 20131217
  Transmission Date: 20140711
  Serious: Yes (Hospitalization)
  Sender: FDA-Public Use
  Company Number: US-GLAXOSMITHKLINE-A0931043A

PATIENT
  Age: 47 Year
  Sex: Male

DRUGS (2)
  1. AVANDAMET [Suspect]
     Indication: DIABETES MELLITUS
     Route: 048
     Dates: start: 200212, end: 200503
  2. AVANDIA [Suspect]
     Indication: DIABETES MELLITUS
     Dosage: 4MG TWICE PER DAY
     Route: 048
     Dates: start: 20050419, end: 20070326

REACTIONS (4)
  - Coronary artery occlusion [Unknown]
  - Ischaemic cardiomyopathy [Unknown]
  - Coronary artery bypass [Unknown]
  - Cardiovascular disorder [Unknown]
